FAERS Safety Report 6926189-8 (Version None)
Quarter: 2010Q3

REPORT INFORMATION
  Report Type: 
  Country: None (occurrence: None)
  Receive Date: 20100813
  Receipt Date: 20100813
  Transmission Date: 20110219
  Serious: Yes (Other)
  Sender: FDA-Public Use
  Company Number: None

PATIENT
  Sex: Female
  Weight: 72.5755 kg

DRUGS (1)
  1. REGLAN [Suspect]
     Indication: GASTRIC DISORDER
     Dosage: 10MG 4 X A DAY
     Dates: start: 20090112, end: 20090919

REACTIONS (6)
  - DRUG INEFFECTIVE [None]
  - MUSCLE TWITCHING [None]
  - PAIN [None]
  - PAIN IN JAW [None]
  - SLEEP DISORDER [None]
  - TONGUE SPASM [None]
